FAERS Safety Report 18794011 (Version 2)
Quarter: 2021Q1

REPORT INFORMATION
  Report Type: Spontaneous
  Country: GB (occurrence: GB)
  Receive Date: 20210127
  Receipt Date: 20210128
  Transmission Date: 20210419
  Serious: Yes (Disabling, Other)
  Sender: FDA-Public Use
  Company Number: GB-TEVA-2021-GB-1869296

PATIENT
  Age: 24 Year
  Sex: Female
  Weight: 53.06 kg

DRUGS (1)
  1. CLARITHROMYCIN CITRATE [Suspect]
     Active Substance: CLARITHROMYCIN CITRATE
     Indication: SKIN INFECTION
     Dosage: 1000 MILLIGRAM DAILY; 500MG TWICE A DAY FOR 5 DAYS
     Route: 048

REACTIONS (12)
  - Anxiety [Not Recovered/Not Resolved]
  - Skin infection [Unknown]
  - Abdominal distension [Not Recovered/Not Resolved]
  - Depression suicidal [Recovered/Resolved with Sequelae]
  - Nausea [Unknown]
  - Appetite disorder [Recovered/Resolved with Sequelae]
  - Dysgeusia [Recovered/Resolved]
  - Depression [Unknown]
  - Heart rate increased [Unknown]
  - Abdominal pain upper [Recovered/Resolved with Sequelae]
  - Diarrhoea [Unknown]
  - Vaginal haemorrhage [Unknown]
